FAERS Safety Report 7360906-0 (Version None)
Quarter: 2011Q1

REPORT INFORMATION
  Report Type: 
  Country: None (occurrence: None)
  Receive Date: 20110318
  Receipt Date: 20100928
  Transmission Date: 20110831
  Serious: Yes (Other)
  Sender: FDA-Public Use
  Company Number: US-BAYER-201034869NA

PATIENT
  Sex: Female
  Weight: 90.703 kg

DRUGS (5)
  1. IBUPROFEN [Concomitant]
  2. YASMIN [Suspect]
     Dosage: UNK
     Dates: start: 20030101, end: 20060101
  3. DYAZIDE [Concomitant]
     Indication: HYPERTENSION
     Dosage: UNK
  4. XENICAL [Concomitant]
     Indication: WEIGHT FLUCTUATION
     Dosage: UNK
     Dates: start: 20020101
  5. TENORMIN [Concomitant]
     Indication: HYPERTENSION

REACTIONS (2)
  - CHOLECYSTECTOMY [None]
  - CHOLELITHIASIS [None]
